FAERS Safety Report 22322203 (Version 1)
Quarter: 2023Q2

REPORT INFORMATION
  Report Type: Spontaneous
  Country: US (occurrence: US)
  Receive Date: 20230516
  Receipt Date: 20230516
  Transmission Date: 20230721
  Serious: No
  Sender: FDA-Public Use
  Company Number: US-SA-SAC20230512000235

PATIENT
  Sex: Female

DRUGS (8)
  1. DUPIXENT [Suspect]
     Active Substance: DUPILUMAB
     Indication: Dermatitis atopic
     Dosage: 600 MG, 1X
     Route: 058
  2. ALBUTEROL SULFATE [Concomitant]
     Active Substance: ALBUTEROL SULFATE
     Dosage: ALBUTEROL SU NEB 0.63MG/3
  3. CALCIUM [Concomitant]
     Active Substance: CALCIUM
  4. METFORMIN HYDROCHLORIDE [Concomitant]
     Active Substance: METFORMIN HYDROCHLORIDE
  5. PIOGLITAZONE [Concomitant]
     Active Substance: PIOGLITAZONE
  6. VALSARTAN [Concomitant]
     Active Substance: VALSARTAN
  7. VITAMIN D3 [Concomitant]
     Active Substance: CHOLECALCIFEROL
  8. ASPIRIN [Concomitant]
     Active Substance: ASPIRIN
     Dosage: 81MG QD

REACTIONS (1)
  - Dysphonia [Unknown]
